FAERS Safety Report 11719219 (Version 1)
Quarter: 2015Q4

REPORT INFORMATION
  Report Type: Spontaneous
  Country: US (occurrence: US)
  Receive Date: 20151110
  Receipt Date: 20151110
  Transmission Date: 20160304
  Serious: No
  Sender: FDA-Public Use
  Company Number: US-VANDA PHARMACEUTICALS, INC-2015TASUS000720

PATIENT
  Age: 35 Year
  Sex: Female

DRUGS (2)
  1. HETLIOZ [Suspect]
     Active Substance: TASIMELTEON
     Dosage: 20 MG, QHS (1H PRIOR TO BEDTIME, SAME TIME EACH NIGHT)
     Route: 048
     Dates: start: 201408
  2. HETLIOZ [Suspect]
     Active Substance: TASIMELTEON
     Indication: CIRCADIAN RHYTHM SLEEP DISORDER
     Dosage: 20 MG, QHS (1H PRIOR TO BEDTIME, SAME TIME EACH NIGHT)
     Route: 048
     Dates: start: 201408

REACTIONS (3)
  - Sleep terror [Not Recovered/Not Resolved]
  - Nightmare [Unknown]
  - Abnormal dreams [Unknown]

NARRATIVE: CASE EVENT DATE: 201408
